FAERS Safety Report 7330574-2 (Version None)
Quarter: 2011Q1

REPORT INFORMATION
  Report Type: 
  Country: None (occurrence: None)
  Receive Date: 20110304
  Receipt Date: 20110224
  Transmission Date: 20110831
  Serious: No
  Sender: FDA-Public Use
  Company Number: US-BIOGENIDEC-2011BI007413

PATIENT
  Age: 57 Year
  Sex: Male

DRUGS (5)
  1. AVONEX [Concomitant]
     Indication: MULTIPLE SCLEROSIS
     Route: 030
     Dates: start: 20081001
  2. AVONEX [Concomitant]
     Route: 030
  3. TYSABRI [Suspect]
     Indication: MULTIPLE SCLEROSIS
     Route: 042
     Dates: start: 20100924
  4. TYSABRI [Suspect]
     Route: 042
     Dates: start: 20090603, end: 20100706
  5. TYSABRI [Suspect]
     Route: 042
     Dates: start: 20071012, end: 20090227

REACTIONS (3)
  - MULTIPLE SCLEROSIS [None]
  - INFLUENZA LIKE ILLNESS [None]
  - HYPERTENSION [None]
